FAERS Safety Report 7846940-2 (Version None)
Quarter: 2011Q4

REPORT INFORMATION
  Report Type: 
  Country: None (occurrence: None)
  Receive Date: 20111025
  Receipt Date: 20111021
  Transmission Date: 20120403
  Serious: Yes (Death)
  Sender: FDA-Public Use
  Company Number: IT-ASTRAZENECA-2011SE53180

PATIENT
  Age: 30 Year
  Sex: Male
  Weight: 150 kg

DRUGS (8)
  1. LORAZEPAM [Concomitant]
     Dosage: 60 GTT, 60 DROPS DAILY
     Route: 048
  2. AKINETON [Concomitant]
     Route: 048
  3. DEPAKENE [Concomitant]
  4. NEBIVOLOL HCL [Concomitant]
     Route: 048
  5. SEROQUEL [Suspect]
     Route: 048
  6. TRANQUIRT [Concomitant]
     Route: 048
  7. SEROQUEL [Suspect]
     Dosage: 200 MG+300 MG/DAY
     Route: 048
     Dates: start: 20101201, end: 20110901
  8. PROMAZINE HYDROCHLORIDE [Concomitant]

REACTIONS (1)
  - SUDDEN DEATH [None]
